FAERS Safety Report 4478150-3 (Version None)
Quarter: 2004Q4

REPORT INFORMATION
  Report Type: 
  Country: None (occurrence: None)
  Receive Date: 20041014
  Receipt Date: 20040929
  Transmission Date: 20050328
  Serious: No
  Sender: FDA-Public Use
  Company Number: 2003-DE-05700GD

PATIENT
  Age: 34 Year
  Sex: Male

DRUGS (1)
  1. METHADONE (METHADONE) [Suspect]
     Dosage: 385 MG

REACTIONS (4)
  - DILATATION VENTRICULAR [None]
  - ELECTROCARDIOGRAM QT CORRECTED INTERVAL PROLONGED [None]
  - SINUS BRADYCARDIA [None]
  - SYNCOPE [None]
